FAERS Safety Report 10851125 (Version 1)
Quarter: 2015Q1

REPORT INFORMATION
  Report Type: Spontaneous
  Country: US (occurrence: US)
  Receive Date: 20150222
  Receipt Date: 20150222
  Transmission Date: 20150721
  Serious: No
  Sender: FDA-Public Use
  Company Number: US-ALLERGAN-1401100US

PATIENT
  Age: 80 Year
  Sex: Female

DRUGS (2)
  1. THYROID MEDICATION [Concomitant]
     Active Substance: UNSPECIFIED INGREDIENT
     Indication: POSTOPERATIVE CARE
     Dosage: UNK
  2. BOTOX [Suspect]
     Active Substance: ONABOTULINUMTOXINA
     Indication: NECK INJURY
     Dosage: 100 UNITS, SINGLE
     Dates: start: 2010, end: 2010

REACTIONS (4)
  - Paralysis [Not Recovered/Not Resolved]
  - Neck pain [Not Recovered/Not Resolved]
  - Off label use [Unknown]
  - Muscular weakness [Not Recovered/Not Resolved]
